FAERS Safety Report 19091574 (Version 1)
Quarter: 2021Q2

REPORT INFORMATION
  Report Type: Spontaneous
  Country: US (occurrence: US)
  Receive Date: 20210405
  Receipt Date: 20210405
  Transmission Date: 20210717
  Serious: No
  Sender: FDA-Public Use
  Company Number: NVSC2021US069850

PATIENT

DRUGS (1)
  1. COSENTYX [Suspect]
     Active Substance: SECUKINUMAB
     Indication: PRODUCT USED FOR UNKNOWN INDICATION
     Dosage: UNK
     Route: 065

REACTIONS (5)
  - Oral pain [Recovered/Resolved]
  - Candida infection [Recovered/Resolved]
  - Throat irritation [Recovered/Resolved]
  - Pharyngeal swelling [Recovered/Resolved]
  - Dry mouth [Recovered/Resolved]
